FAERS Safety Report 5218702-6 (Version None)
Quarter: 2007Q1

REPORT INFORMATION
  Report Type: 
  Country: None (occurrence: None)
  Receive Date: 20070122
  Receipt Date: 20070108
  Transmission Date: 20070707
  Serious: Yes (Other)
  Sender: FDA-Public Use
  Company Number: 1-144678717/MED-06231

PATIENT
  Sex: Female
  Weight: 59.5 kg

DRUGS (3)
  1. DOXYCYCLINE HYCLATE [Suspect]
     Indication: ACNE
     Dosage: 100 MG, TWICE DAILY, ORAL
     Route: 048
     Dates: start: 20061127, end: 20061206
  2. DOXYCYCLINE HYCLATE [Suspect]
     Indication: EAR INFECTION
     Dosage: 100 MG, TWICE DAILY, ORAL
     Route: 048
     Dates: start: 20061127, end: 20061206
  3. XANAX [Concomitant]

REACTIONS (7)
  - APHAGIA [None]
  - BLOOD URINE PRESENT [None]
  - CHEST PAIN [None]
  - DYSPEPSIA [None]
  - NEPHROLITHIASIS [None]
  - OESOPHAGEAL ULCER [None]
  - OESOPHAGITIS [None]
